FAERS Safety Report 5477726-4 (Version None)
Quarter: 2007Q3

REPORT INFORMATION
  Report Type: 
  Country: None (occurrence: None)
  Receive Date: 20070918
  Receipt Date: 20070918
  Transmission Date: 20080115
  Serious: Yes (Other)
  Sender: FDA-Public Use
  Company Number: None

PATIENT
  Age: 83 Year
  Sex: Male

DRUGS (1)
  1. NEVANAC [Suspect]
     Indication: CATARACT OPERATION
     Dosage: ONE DROP TO EYE  4 TIMES A DAY
     Dates: start: 20070812, end: 20070905

REACTIONS (1)
  - EYE OEDEMA [None]
